FAERS Safety Report 11173901 (Version 1)
Quarter: 2015Q2

REPORT INFORMATION
  Report Type: Spontaneous
  Country: IT (occurrence: None)
  Receive Date: 20150605
  Receipt Date: 20150605
  Transmission Date: 20150821
  Serious: Yes (Death, Other)
  Sender: FDA-Public Use
  Company Number: 2015060010

PATIENT
  Age: 35 Year
  Sex: Female
  Weight: 48 kg

DRUGS (8)
  1. LAMOTRIGINE. [Suspect]
     Active Substance: LAMOTRIGINE
  2. DESVENLAFAXINE. [Suspect]
     Active Substance: DESVENLAFAXINE
  3. ZOLPIDEM [Suspect]
     Active Substance: ZOLPIDEM\ZOLPIDEM TARTRATE
  4. TRAMADOL [Suspect]
     Active Substance: TRAMADOL
  5. MODAFINIL. [Suspect]
     Active Substance: MODAFINIL
  6. PREGABALIN. [Suspect]
     Active Substance: PREGABALIN
  7. CORTISONE [Concomitant]
     Active Substance: CORTISONE\HYDROCORTISONE
  8. ZOPICLONE [Suspect]
     Active Substance: ZOPICLONE

REACTIONS (5)
  - Skin lesion [None]
  - Toxicity to various agents [None]
  - Hypersensitivity [None]
  - Completed suicide [None]
  - Swelling face [None]
